FAERS Safety Report 10213662 (Version 2)
Quarter: 2014Q2

REPORT INFORMATION
  Report Type: Spontaneous
  Country: US (occurrence: US)
  Receive Date: 20140603
  Receipt Date: 20140616
  Transmission Date: 20141212
  Serious: Yes (Other)
  Sender: FDA-Public Use
  Company Number: US-009507513-1405USA013327

PATIENT
  Sex: Female

DRUGS (1)
  1. NEXPLANON [Suspect]
     Indication: CONTRACEPTION
     Dosage: SINGLE ROD
     Route: 059
     Dates: start: 201310

REACTIONS (5)
  - Transfusion [Unknown]
  - Uterine dilation and curettage [Unknown]
  - Haemoglobin decreased [Unknown]
  - Menstruation irregular [Recovering/Resolving]
  - Menorrhagia [Recovering/Resolving]
